FAERS Safety Report 7869523-7 (Version None)
Quarter: 2011Q4

REPORT INFORMATION
  Report Type: 
  Country: None (occurrence: None)
  Receive Date: 20111028
  Receipt Date: 20110104
  Transmission Date: 20120403
  Serious: No
  Sender: FDA-Public Use
  Company Number: US-AMGEN-USASP2011000463

PATIENT
  Age: 17 Year
  Sex: Male

DRUGS (1)
  1. ENBREL [Suspect]
     Indication: JUVENILE ARTHRITIS
     Dosage: 25 MG, 2 TIMES/WK
     Dates: start: 20100901, end: 20101201

REACTIONS (4)
  - OROPHARYNGEAL PAIN [None]
  - HEADACHE [None]
  - STREPTOCOCCUS TEST POSITIVE [None]
  - FATIGUE [None]
